FAERS Safety Report 6284161-8 (Version None)
Quarter: 2009Q3

REPORT INFORMATION
  Report Type: 
  Country: None (occurrence: None)
  Receive Date: 20090722
  Receipt Date: 20090708
  Transmission Date: 20100115
  Serious: Yes (Life-Threatening)
  Sender: FDA-Public Use
  Company Number: 1000007531

PATIENT
  Sex: Male

DRUGS (4)
  1. ESCITALOPRAM OXALATE [Suspect]
     Indication: DEPRESSION
     Dosage: (60 MG, ONCE), ORAL; (10 MG), ORAL
     Route: 048
     Dates: start: 20090705, end: 20090705
  2. ESCITALOPRAM OXALATE [Suspect]
     Indication: DEPRESSION
     Dosage: (60 MG, ONCE), ORAL; (10 MG), ORAL
     Route: 048
     Dates: start: 20090601
  3. PLAVIX [Concomitant]
  4. ANTIARRYTHMIC NOS [Concomitant]

REACTIONS (5)
  - CONVULSION [None]
  - HALLUCINATION, VISUAL [None]
  - INTENTIONAL OVERDOSE [None]
  - LOSS OF CONSCIOUSNESS [None]
  - SUICIDE ATTEMPT [None]
